FAERS Safety Report 25274916 (Version 1)
Quarter: 2025Q2

REPORT INFORMATION
  Report Type: Spontaneous
  Country: AU (occurrence: AU)
  Receive Date: 20250506
  Receipt Date: 20250506
  Transmission Date: 20250717
  Serious: Yes (Other)
  Sender: GILEAD
  Company Number: AU-GILEAD-2025-0711960

PATIENT
  Age: 52 Year
  Sex: Male

DRUGS (2)
  1. VIREAD [Suspect]
     Active Substance: TENOFOVIR DISOPROXIL FUMARATE
     Indication: Product used for unknown indication
     Route: 065
  2. BULEVIRTIDE [Suspect]
     Active Substance: BULEVIRTIDE
     Indication: Hepatitis D
     Route: 065

REACTIONS (4)
  - Hepatic cirrhosis [Unknown]
  - Liver disorder [Unknown]
  - Alanine aminotransferase abnormal [Unknown]
  - Hepatitis D RNA positive [Unknown]
